FAERS Safety Report 24940453 (Version 1)
Quarter: 2025Q1

REPORT INFORMATION
  Report Type: Report from Study
  Country: CA (occurrence: CA)
  Receive Date: 20250207
  Receipt Date: 20250207
  Transmission Date: 20250409
  Serious: Yes (Other)
  Sender: TAKEDA
  Company Number: CA-TAKEDA-2025TUS011481

PATIENT
  Sex: Female

DRUGS (5)
  1. VEDOLIZUMAB [Suspect]
     Active Substance: VEDOLIZUMAB
     Indication: Colitis ulcerative
  2. MESALAMINE [Concomitant]
     Active Substance: MESALAMINE
  3. PERINDOPRIL [Concomitant]
     Active Substance: PERINDOPRIL
  4. OZEMPIC [Concomitant]
     Active Substance: SEMAGLUTIDE
  5. JARDIANCE [Concomitant]
     Active Substance: EMPAGLIFLOZIN

REACTIONS (1)
  - Cerebrovascular accident [Unknown]
